FAERS Safety Report 20146844 (Version 1)
Quarter: 2021Q4

REPORT INFORMATION
  Report Type: Spontaneous
  Country: KP (occurrence: KP)
  Receive Date: 20211203
  Receipt Date: 20211203
  Transmission Date: 20220303
  Serious: Yes (Hospitalization)
  Sender: FDA-Public Use
  Company Number: KP-CIPHER-2021-KP-000001

PATIENT
  Age: 65 Year
  Sex: Male

DRUGS (3)
  1. FENOFIBRATE [Suspect]
     Active Substance: FENOFIBRATE
     Indication: Hyperlipidaemia
     Dates: start: 202102, end: 20210326
  2. AMLODIPINE [Concomitant]
     Active Substance: AMLODIPINE BESYLATE
     Dates: start: 2016
  3. VALSARTAN [Concomitant]
     Active Substance: VALSARTAN

REACTIONS (3)
  - Jaundice [None]
  - Drug-induced liver injury [Recovered/Resolved]
  - Ureterolithiasis [Recovered/Resolved]

NARRATIVE: CASE EVENT DATE: 20210301
